FAERS Safety Report 4834167-8 (Version None)
Quarter: 2005Q4

REPORT INFORMATION
  Report Type: 
  Country: None (occurrence: None)
  Receive Date: 20051118
  Receipt Date: 20051118
  Transmission Date: 20060501
  Serious: Yes (Other)
  Sender: FDA-Public Use
  Company Number: None

PATIENT
  Age: 56 Year
  Sex: Male
  Weight: 102.5 kg

DRUGS (5)
  1. SULFASALAZINE [Suspect]
  2. ALBUTEROL SULFATE AND IPRATROPIUM BROMIDE [Concomitant]
  3. FORMOTEROL FUMARATE [Concomitant]
  4. LORATADINE [Concomitant]
  5. FLUNISOLIDE [Concomitant]

REACTIONS (1)
  - URTICARIA [None]
